FAERS Safety Report 4673200-3 (Version None)
Quarter: 2005Q2

REPORT INFORMATION
  Report Type: 
  Country: None (occurrence: None)
  Receive Date: 20050525
  Receipt Date: 20040927
  Transmission Date: 20051028
  Serious: No
  Sender: FDA-Public Use
  Company Number: US-GLAXOSMITHKLINE-A0527740A

PATIENT
  Age: 70 Year
  Sex: Male
  Weight: 131.8 kg

DRUGS (1)
  1. BACTROBAN [Suspect]
     Indication: WOUND
     Route: 061
     Dates: start: 20040910, end: 20041008

REACTIONS (2)
  - APPLICATION SITE REACTION [None]
  - BLISTER [None]
